FAERS Safety Report 13527009 (Version 1)
Quarter: 2017Q2

REPORT INFORMATION
  Report Type: Spontaneous
  Country: US (occurrence: US)
  Receive Date: 20170509
  Receipt Date: 20170509
  Transmission Date: 20170830
  Serious: Yes (Hospitalization)
  Sender: FDA-Public Use
  Company Number: None

PATIENT
  Age: 80 Year
  Sex: Male

DRUGS (12)
  1. FUROSEMIDE. [Concomitant]
     Active Substance: FUROSEMIDE
  2. LEVEMIR [Concomitant]
     Active Substance: INSULIN DETEMIR
  3. SYNTHROID [Concomitant]
     Active Substance: LEVOTHYROXINE SODIUM
  4. NITROGLYCERIN. [Concomitant]
     Active Substance: NITROGLYCERIN
  5. NOVOLOG [Concomitant]
     Active Substance: INSULIN ASPART
  6. XARELTO [Concomitant]
     Active Substance: RIVAROXABAN
  7. JARDIANCE [Suspect]
     Active Substance: EMPAGLIFLOZIN
     Indication: TYPE 2 DIABETES MELLITUS
     Dosage: ?          QUANTITY:1 TABLET(S);?
     Route: 048
  8. FLONASE [Concomitant]
     Active Substance: FLUTICASONE PROPIONATE
  9. ERGOCALCIFEROL. [Concomitant]
     Active Substance: ERGOCALCIFEROL
  10. ALLOPURINOL. [Concomitant]
     Active Substance: ALLOPURINOL
  11. VYTORIN [Concomitant]
     Active Substance: EZETIMIBE\SIMVASTATIN
  12. METOPROLOL. [Concomitant]
     Active Substance: METOPROLOL

REACTIONS (2)
  - Diarrhoea [None]
  - Urinary retention [None]

NARRATIVE: CASE EVENT DATE: 20170503
